FAERS Safety Report 14578573 (Version 2)
Quarter: 2018Q1

REPORT INFORMATION
  Report Type: Spontaneous
  Country: IL (occurrence: IL)
  Receive Date: 20180227
  Receipt Date: 20180228
  Transmission Date: 20180509
  Serious: Yes (Hospitalization)
  Sender: FDA-Public Use
  Company Number: IL-TEVA-2018-IL-861143

PATIENT
  Age: 36 Year
  Sex: Female

DRUGS (1)
  1. TACROLIMUS. [Suspect]
     Active Substance: TACROLIMUS
     Route: 065

REACTIONS (2)
  - Klebsiella infection [Recovering/Resolving]
  - Endocarditis bacterial [Recovering/Resolving]
